FAERS Safety Report 4539209-5 (Version None)
Quarter: 2004Q4

REPORT INFORMATION
  Report Type: 
  Country: None (occurrence: None)
  Receive Date: 20041222
  Receipt Date: 20041209
  Transmission Date: 20050328
  Serious: Yes (Death, Life-Threatening, Hospitalization)
  Sender: FDA-Public Use
  Company Number: A202676

PATIENT
  Age: 36 Year
  Sex: Female
  Weight: 102 kg

DRUGS (10)
  1. DOFETILIDE (DOFETILIDE) [Suspect]
     Indication: ATRIAL FIBRILLATION
     Dosage: 1000 MCG (BID); ORAL
     Route: 048
     Dates: start: 20020109, end: 20020213
  2. COUMADIN [Concomitant]
  3. ENALAPRIL MALEATE [Concomitant]
  4. LOPRESSOR [Concomitant]
  5. POTASSIUM CHLORIDE [Concomitant]
  6. TRAMADOL HCL [Concomitant]
  7. BACTRIM [Concomitant]
  8. CIPROFLOXACIN [Concomitant]
  9. POTASSIUM CANRENOATE [Concomitant]
  10. POTASSIUM CHLORIDE [Concomitant]

REACTIONS (16)
  - ACUTE CORONARY SYNDROME [None]
  - ACUTE LEFT VENTRICULAR FAILURE [None]
  - AV DISSOCIATION [None]
  - CARDIAC ARREST [None]
  - CARDIOMYOPATHY [None]
  - CYSTITIS [None]
  - DIARRHOEA [None]
  - DRUG INTERACTION [None]
  - ELECTROCARDIOGRAM QT PROLONGED [None]
  - MYOCARDIAL FIBROSIS [None]
  - MYOCARDITIS [None]
  - OBESITY [None]
  - PACEMAKER COMPLICATION [None]
  - PULMONARY CONGESTION [None]
  - VENTRICULAR FIBRILLATION [None]
  - VENTRICULAR TACHYCARDIA [None]
